FAERS Safety Report 5377160-1 (Version None)
Quarter: 2007Q3

REPORT INFORMATION
  Report Type: 
  Country: None (occurrence: None)
  Receive Date: 20070703
  Receipt Date: 20070621
  Transmission Date: 20080115
  Serious: Yes (Hospitalization)
  Sender: FDA-Public Use
  Company Number: US-ELI_LILLY_AND_COMPANY-US200702005259

PATIENT
  Age: 72 Year
  Sex: Female

DRUGS (2)
  1. HUMALOG [Suspect]
     Dosage: UNK, AS NEEDED
  2. HUMULIN N [Suspect]
     Dosage: 15 U, EACH EVENING

REACTIONS (1)
  - CONGENITAL CYSTIC KIDNEY DISEASE [None]
